FAERS Safety Report 8962654 (Version 1)
Quarter: 2012Q4

REPORT INFORMATION
  Report Type: 
  Country: US (occurrence: US)
  Receive Date: 20121214
  Receipt Date: 20121214
  Transmission Date: 20130627
  Serious: No
  Sender: FDA-Public Use
  Company Number: US-BAYER-2012-131379

PATIENT

DRUGS (3)
  1. ALEVE CAPLET/TABLET,MIDOL EXTENDED RELIEF CAPLET [Suspect]
     Indication: TOOTHACHE
  2. ORAJEL [Concomitant]
  3. OIL OF CLOVE [Concomitant]

REACTIONS (3)
  - Pain in jaw [None]
  - Paraesthesia [None]
  - Drug ineffective [None]
